FAERS Safety Report 11917864 (Version 2)
Quarter: 2016Q1

REPORT INFORMATION
  Report Type: Spontaneous
  Country: CA (occurrence: CA)
  Receive Date: 20160114
  Receipt Date: 20160226
  Transmission Date: 20160526
  Serious: Yes (Other)
  Sender: FDA-Public Use
  Company Number: CA-BAYER-2016-007317

PATIENT
  Age: 96 Year
  Sex: Female
  Weight: 63.49 kg

DRUGS (1)
  1. ASPIRIN. [Suspect]
     Active Substance: ASPIRIN
     Indication: ARTHRITIS
     Dosage: 1 DF, QID
     Route: 048

REACTIONS (3)
  - Angina pectoris [None]
  - Product use issue [None]
  - Hypertension [None]
